FAERS Safety Report 9122317 (Version 1)
Quarter: 2013Q1

REPORT INFORMATION
  Report Type: Spontaneous
  Country: US (occurrence: US)
  Receive Date: 20130114
  Receipt Date: 20130114
  Transmission Date: 20140127
  Serious: Yes (Other)
  Sender: FDA-Public Use
  Company Number: US-BIOGENIDEC-2013BI002066

PATIENT
  Age: 49 Year
  Sex: Female

DRUGS (8)
  1. AVONEX [Suspect]
     Indication: MULTIPLE SCLEROSIS
     Route: 030
     Dates: start: 20011003
  2. SYNTHROID [Concomitant]
     Indication: THYROID DISORDER
  3. KEPPRA [Concomitant]
     Indication: CONVULSION
     Route: 048
     Dates: start: 20120512
  4. BENADRYL [Concomitant]
     Indication: URTICARIA
  5. RAZADYNE [Concomitant]
     Indication: MEMORY IMPAIRMENT
  6. BUDESONIDE [Concomitant]
     Indication: ASTHMA
  7. BUDESONIDE [Concomitant]
     Indication: ASTHMA
  8. DILANTIN [Concomitant]
     Indication: CONVULSION

REACTIONS (3)
  - Complex partial seizures [Recovered/Resolved]
  - Anticonvulsant drug level decreased [Recovered/Resolved]
  - Peak expiratory flow rate decreased [Recovered/Resolved]
